FAERS Safety Report 9543222 (Version 2)
Quarter: 2013Q3

REPORT INFORMATION
  Report Type: Spontaneous
  Country: US (occurrence: US)
  Receive Date: 20130923
  Receipt Date: 20130923
  Transmission Date: 20140515
  Serious: Yes (Other)
  Sender: FDA-Public Use
  Company Number: US-NAPPMUNDI-USA-2010-0042562

PATIENT
  Age: 20 Year
  Sex: Female

DRUGS (6)
  1. DILAUDID TABLET [Suspect]
     Indication: DRUG ABUSE
  2. OXYCONTIN TABLETS [Suspect]
     Indication: DRUG ABUSE
  3. MORPHINE SULFATE (SIMILAR TO NDA 19-516) [Suspect]
     Indication: DRUG ABUSE
  4. OPANA [Suspect]
     Indication: DRUG ABUSE
  5. HEROIN [Suspect]
     Indication: DRUG ABUSE
  6. COCAINE [Suspect]
     Indication: DRUG ABUSE
     Dosage: UNK

REACTIONS (2)
  - Substance abuse [Unknown]
  - Polysubstance dependence [Unknown]
